FAERS Safety Report 18709123 (Version 1)
Quarter: 2021Q1

REPORT INFORMATION
  Report Type: Spontaneous
  Country: IN (occurrence: IN)
  Receive Date: 20210106
  Receipt Date: 20210106
  Transmission Date: 20210419
  Serious: Yes (Other)
  Sender: FDA-Public Use
  Company Number: IN-BAUSCH-BL-2020-038576

PATIENT
  Age: 6 Year
  Sex: Male

DRUGS (1)
  1. CYCLOPENTOLATE. [Suspect]
     Active Substance: CYCLOPENTOLATE
     Indication: PUPIL DILATION PROCEDURE
     Dosage: 1 DROP ADMINISTERED THRICE AT FIVE MINUTES INTERVALS
     Route: 031

REACTIONS (4)
  - Hallucination [Recovered/Resolved]
  - Neurotoxicity [Recovered/Resolved]
  - Ataxia [Recovered/Resolved]
  - Restlessness [Recovered/Resolved]
